FAERS Safety Report 9271745 (Version 1)
Quarter: 2013Q2

REPORT INFORMATION
  Report Type: Other
  Country: US (occurrence: US)
  Receive Date: 20130506
  Receipt Date: 20130506
  Transmission Date: 20140414
  Serious: Yes (Hospitalization)
  Sender: FDA-Public Use
  Company Number: US-BRISTOL-MYERS SQUIBB COMPANY-18856393

PATIENT
  Age: 77 Year
  Sex: Male

DRUGS (3)
  1. METFORMIN HCL [Suspect]
  2. LISINOPRIL [Interacting]
  3. 5-FLUOROURACIL [Interacting]
     Indication: ACTINIC KERATOSIS
     Dosage: CREAM
     Route: 061

REACTIONS (4)
  - Angioedema [Recovered/Resolved]
  - Drug interaction [Unknown]
  - Syncope [None]
  - Anaphylactic reaction [None]
